FAERS Safety Report 4421923-3 (Version None)
Quarter: 2004Q3

REPORT INFORMATION
  Report Type: 
  Country: None (occurrence: None)
  Receive Date: 20040806
  Receipt Date: 20040806
  Transmission Date: 20050211
  Serious: Yes (Hospitalization)
  Sender: FDA-Public Use
  Company Number: None

PATIENT
  Sex: Male

DRUGS (2)
  1. SODIUM POLYSTYRENE SULFONATE [Suspect]
     Dosage: ORAL
     Route: 048
     Dates: start: 20040212, end: 20040215
  2. SORBITOL 70% SOLUTION [Suspect]
     Dosage: ORAL
     Route: 048
     Dates: start: 20040212, end: 20040215

REACTIONS (3)
  - DEHYDRATION [None]
  - DIARRHOEA [None]
  - HYPOTENSION [None]
